FAERS Safety Report 17429032 (Version 2)
Quarter: 2020Q1

REPORT INFORMATION
  Report Type: Report from Study
  Country: US (occurrence: US)
  Receive Date: 20200218
  Receipt Date: 20200309
  Transmission Date: 20200409
  Serious: Yes (Hospitalization, Other)
  Sender: FDA-Public Use
  Company Number: US-GLAXOSMITHKLINE-US2019TSO237058

PATIENT
  Age: 63 Year
  Sex: Female

DRUGS (3)
  1. NIRAPARIB [Suspect]
     Active Substance: NIRAPARIB
     Indication: OVARIAN CANCER
     Dosage: 300 MG, QD, BETWEEN 11 PM AND 12 AM WITH FOOD
     Dates: start: 20191221
  2. TURMERIC [Concomitant]
     Active Substance: HERBALS\TURMERIC
     Indication: PRODUCT USED FOR UNKNOWN INDICATION
     Dosage: UNK
  3. NIRAPARIB [Suspect]
     Active Substance: NIRAPARIB
     Dosage: 300 MG, QD

REACTIONS (15)
  - Migraine [Recovered/Resolved]
  - Decreased appetite [Recovering/Resolving]
  - Visual impairment [Unknown]
  - Product dose omission [Unknown]
  - Regurgitation [Unknown]
  - Vomiting projectile [Unknown]
  - Nasopharyngitis [Unknown]
  - Blood potassium increased [Unknown]
  - Oropharyngeal pain [Unknown]
  - Abdominal pain [Unknown]
  - Constipation [Recovered/Resolved]
  - Nasal congestion [Unknown]
  - Abdominal pain upper [Unknown]
  - Vomiting [Unknown]
  - Intestinal obstruction [Unknown]

NARRATIVE: CASE EVENT DATE: 20191227
